FAERS Safety Report 23258251 (Version 4)
Quarter: 2024Q1

REPORT INFORMATION
  Report Type: Report from Study
  Country: CA (occurrence: CA)
  Receive Date: 20231204
  Receipt Date: 20240226
  Transmission Date: 20240410
  Serious: Yes (Other)
  Sender: FDA-Public Use
  Company Number: CA-TAKEDA-2023TUS115269

PATIENT
  Sex: Female

DRUGS (3)
  1. VEDOLIZUMAB [Suspect]
     Active Substance: VEDOLIZUMAB
     Indication: Colitis ulcerative
     Dosage: 300 MILLIGRAM
     Route: 042
     Dates: start: 20231113, end: 20240215
  2. MESALAMINE [Concomitant]
     Active Substance: MESALAMINE
     Dosage: UNK UNK, QD
     Dates: start: 20231023
  3. PENTASA [Concomitant]
     Active Substance: MESALAMINE
     Dosage: UNK UNK, BID
     Dates: start: 202307

REACTIONS (19)
  - Urticaria [Unknown]
  - Constipation [Unknown]
  - Insomnia [Unknown]
  - Breast swelling [Unknown]
  - Illness [Unknown]
  - Diarrhoea [Unknown]
  - Pain [Unknown]
  - Skin depigmentation [Unknown]
  - Asthenia [Unknown]
  - Dyspnoea [Unknown]
  - Haemoptysis [Unknown]
  - Respiratory tract congestion [Unknown]
  - Ageusia [Unknown]
  - Anosmia [Unknown]
  - Chills [Unknown]
  - Headache [Unknown]
  - Pyrexia [Unknown]
  - Pruritus [Unknown]
  - Infusion related reaction [Unknown]
